FAERS Safety Report 15889033 (Version 1)
Quarter: 2019Q1

REPORT INFORMATION
  Report Type: Spontaneous
  Country: FR (occurrence: FR)
  Receive Date: 20190130
  Receipt Date: 20190130
  Transmission Date: 20190417
  Serious: Yes (Other)
  Sender: FDA-Public Use
  Company Number: FR-PFIZER INC-2019037106

PATIENT
  Age: 66 Year
  Sex: Male

DRUGS (1)
  1. SUTENT [Suspect]
     Active Substance: SUNITINIB MALATE
     Indication: RENAL CANCER METASTATIC
     Dosage: 50 MG, CYCLIC (DAILY FOR 4 WEEKS OUT OF 6 WEEKS)
     Dates: start: 20161025, end: 20180809

REACTIONS (20)
  - Urinary tract disorder [Unknown]
  - Contrast media allergy [Unknown]
  - Intentional product misuse [Unknown]
  - Palmar-plantar erythrodysaesthesia syndrome [Unknown]
  - Diabetes mellitus inadequate control [Unknown]
  - Hypertension [Unknown]
  - Optic ischaemic neuropathy [Unknown]
  - Oedema peripheral [Unknown]
  - Dysgeusia [Unknown]
  - Hydrocele [Unknown]
  - Hypotension [Unknown]
  - Urinary tract infection [Unknown]
  - Diarrhoea [Unknown]
  - Asthenia [Unknown]
  - Decreased appetite [Unknown]
  - Gastrooesophageal reflux disease [Unknown]
  - Hypothyroidism [Unknown]
  - Herpes virus infection [Unknown]
  - Cataract [Unknown]
  - Oral herpes [Recovered/Resolved]

NARRATIVE: CASE EVENT DATE: 20161108
